FAERS Safety Report 15318861 (Version 1)
Quarter: 2018Q3

REPORT INFORMATION
  Report Type: Spontaneous
  Country: US (occurrence: US)
  Receive Date: 20180819
  Receipt Date: 20180819
  Transmission Date: 20181010
  Serious: Yes (Other)
  Sender: FDA-Public Use
  Company Number: None

PATIENT
  Age: 74 Year
  Sex: Female
  Weight: 76.5 kg

DRUGS (11)
  1. VERAPAMIL [Concomitant]
     Active Substance: VERAPAMIL HYDROCHLORIDE
  2. FOLIC ACID. [Concomitant]
     Active Substance: FOLIC ACID
  3. HYDROCHLOROTHIAZIDE. [Concomitant]
     Active Substance: HYDROCHLOROTHIAZIDE
  4. OXAZEPAM. [Concomitant]
     Active Substance: OXAZEPAM
  5. ALENDRONATE 70MG [Suspect]
     Active Substance: ALENDRONATE SODIUM
     Indication: OSTEOPOROSIS PROPHYLAXIS
     Dosage: ?          QUANTITY:1 TABLET(S); WEEKLY?
     Route: 048
  6. INSULIN PUMP CONTAINING NOVOLOG (ASPART) INSULIN [Concomitant]
  7. CALCIUM [Concomitant]
     Active Substance: CALCIUM
  8. LEVOTHYROXINE. [Concomitant]
     Active Substance: LEVOTHYROXINE
  9. PANTOPRAZOLE [Concomitant]
     Active Substance: PANTOPRAZOLE
  10. SPIRONOLACTONE. [Concomitant]
     Active Substance: SPIRONOLACTONE
  11. CHOLECALCIFEROL [Concomitant]
     Active Substance: CHOLECALCIFEROL

REACTIONS (2)
  - Femur fracture [None]
  - Pathological fracture [None]

NARRATIVE: CASE EVENT DATE: 20180815
